FAERS Safety Report 9736881 (Version 1)
Quarter: 2013Q4

REPORT INFORMATION
  Report Type: Spontaneous
  Country: US (occurrence: US)
  Receive Date: 20131206
  Receipt Date: 20131206
  Transmission Date: 20140711
  Serious: No
  Sender: FDA-Public Use
  Company Number: US-BIOGENIDEC-2013BI098909

PATIENT
  Age: 39 Year
  Sex: Female

DRUGS (9)
  1. TECFIDERA [Suspect]
     Indication: MULTIPLE SCLEROSIS
  2. FLEXERIL [Concomitant]
  3. AMPYRA [Concomitant]
  4. IBUPROFEN [Concomitant]
  5. GABAPENTIN [Concomitant]
  6. SERTRALINE [Concomitant]
  7. OMEPRAZOLE [Concomitant]
  8. OXYBUTYNIN [Concomitant]
  9. VITAMIN D [Concomitant]
     Dates: start: 2013

REACTIONS (16)
  - Pain [Unknown]
  - Back pain [Unknown]
  - Insomnia [Unknown]
  - Dizziness [Unknown]
  - Constipation [Unknown]
  - Headache [Unknown]
  - Nasal discomfort [Unknown]
  - Throat irritation [Unknown]
  - Oropharyngeal pain [Unknown]
  - Balance disorder [Unknown]
  - Asthenia [Unknown]
  - Paraesthesia [Unknown]
  - Pruritus [Unknown]
  - Dyspepsia [Unknown]
  - Nausea [Unknown]
  - Skin burning sensation [Unknown]
